FAERS Safety Report 5804853-1 (Version None)
Quarter: 2008Q3

REPORT INFORMATION
  Report Type: 
  Country: None (occurrence: None)
  Receive Date: 20080709
  Receipt Date: 20080627
  Transmission Date: 20090109
  Serious: Yes (Death, Hospitalization, Other)
  Sender: FDA-Public Use
  Company Number: AU-AVENTIS-200810453GDDC

PATIENT
  Age: 72 Year
  Sex: Female

DRUGS (19)
  1. ARAVA [Suspect]
     Indication: RHEUMATOID ARTHRITIS
     Route: 048
     Dates: start: 20070818, end: 20071219
  2. BISOPROLOL FUMARATE [Concomitant]
     Indication: HYPERTENSION
     Route: 048
  3. BISOPROLOL FUMARATE [Concomitant]
     Route: 048
  4. GLICLAZIDE [Concomitant]
     Dosage: DOSE: 60-30
     Route: 048
  5. ALENDRONATE SODIUM [Concomitant]
     Indication: OSTEOPOROSIS
     Route: 048
  6. METFORMIN HCL [Concomitant]
     Route: 048
  7. MICARDIS HCT [Concomitant]
     Indication: HYPERTENSION
     Dosage: DOSE: 0.8/12.5
     Route: 048
  8. PREDNISOLONE [Concomitant]
     Dosage: DOSE: VARIABLE DOSE
     Route: 048
     Dates: start: 20050601
  9. PANTOPRAZOLE SODIUM [Concomitant]
     Route: 048
  10. CRESTOR [Concomitant]
     Route: 048
  11. ZANIDIP [Concomitant]
     Indication: HYPERTENSION
     Route: 048
  12. METHOTREXATE [Concomitant]
     Indication: RHEUMATOID ARTHRITIS
     Route: 048
     Dates: start: 20050101
  13. FOLIC ACID [Concomitant]
     Route: 048
     Dates: start: 20080201
  14. SERTRALINE [Concomitant]
     Indication: DEPRESSION
     Route: 048
     Dates: end: 20071201
  15. SALAZOPYRIN [Concomitant]
     Indication: RHEUMATOID ARTHRITIS
     Route: 048
     Dates: start: 20050101, end: 20071201
  16. ACETAMINOPHEN [Concomitant]
     Indication: OSTEOARTHRITIS
     Route: 048
     Dates: end: 20040101
  17. GLUCOSAMINE [Concomitant]
     Indication: OSTEOARTHRITIS
     Route: 048
     Dates: end: 20040101
  18. CALCIUM [Concomitant]
     Indication: OSTEOPOROSIS
     Route: 048
     Dates: start: 20071201
  19. FERRO F [Concomitant]
     Dosage: DOSE: 1 TBL
     Route: 048
     Dates: start: 20080201

REACTIONS (3)
  - ANAEMIA [None]
  - LIVER DISORDER [None]
  - PNEUMONIA [None]
